FAERS Safety Report 16032251 (Version 1)
Quarter: 2019Q1

REPORT INFORMATION
  Report Type: Spontaneous
  Country: US (occurrence: US)
  Receive Date: 20190304
  Receipt Date: 20190304
  Transmission Date: 20190418
  Serious: Yes (Other)
  Sender: FDA-Public Use
  Company Number: US-009507513-1902USA012259

PATIENT
  Sex: Female

DRUGS (1)
  1. NEXPLANON [Suspect]
     Active Substance: ETONOGESTREL
     Dosage: 68 MILLIGRAM, ONCE
     Route: 059
     Dates: start: 2016, end: 2018

REACTIONS (3)
  - Device dislocation [Recovered/Resolved]
  - Device kink [Unknown]
  - Device breakage [Unknown]

NARRATIVE: CASE EVENT DATE: 2016
